FAERS Safety Report 23222671 (Version 1)
Quarter: 2023Q4

REPORT INFORMATION
  Report Type: Spontaneous
  Country: US (occurrence: US)
  Receive Date: 20231123
  Receipt Date: 20231123
  Transmission Date: 20240109
  Serious: No
  Sender: FDA-Public Use
  Company Number: US-KERYX BIOPHARMACEUTICALS INC.-US-AKEB-22-022635

PATIENT
  Sex: Male

DRUGS (3)
  1. AURYXIA [Suspect]
     Active Substance: TETRAFERRIC TRICITRATE DECAHYDRATE
     Indication: Anaemia
     Dosage: 2 TABLETS 3 TIMES DAILY
     Route: 048
     Dates: start: 202210, end: 202210
  2. AURYXIA [Suspect]
     Active Substance: TETRAFERRIC TRICITRATE DECAHYDRATE
     Dosage: 1 TABLET 3 TIMES DAILY
     Route: 048
     Dates: start: 202210
  3. INSULIN NOS [Suspect]
     Active Substance: INSULIN NOS
     Indication: Product used for unknown indication
     Dosage: UNK
     Route: 065
     Dates: end: 202210

REACTIONS (3)
  - Blood glucose decreased [Recovered/Resolved]
  - Diarrhoea [Unknown]
  - Off label use [Unknown]

NARRATIVE: CASE EVENT DATE: 20221001
